FAERS Safety Report 14992831 (Version 1)
Quarter: 2018Q2

REPORT INFORMATION
  Report Type: Spontaneous
  Country: US (occurrence: US)
  Receive Date: 20180517
  Receipt Date: 20180517
  Transmission Date: 20180711
  Serious: Yes (Death, Life-Threatening, Hospitalization, Disabling)
  Sender: FDA-Public Use
  Company Number: None

PATIENT
  Age: 74 Year
  Sex: Male
  Weight: 83.46 kg

DRUGS (1)
  1. KEYTRUDA [Suspect]
     Active Substance: PEMBROLIZUMAB
     Indication: BLADDER TRANSITIONAL CELL CARCINOMA RECURRENT
     Route: 042
     Dates: start: 20170921, end: 20180213

REACTIONS (24)
  - Weight decreased [None]
  - Adrenal insufficiency [None]
  - Blood glucose increased [None]
  - Hyperhidrosis [None]
  - Anxiety [None]
  - Tremor [None]
  - Temperature intolerance [None]
  - Poor quality sleep [None]
  - Nasopharyngitis [None]
  - Delirium [None]
  - Pulmonary embolism [None]
  - Pneumonitis [None]
  - Pain [None]
  - Traumatic lung injury [None]
  - Fatigue [None]
  - Swelling face [None]
  - Computerised tomogram thorax abnormal [None]
  - Palpitations [None]
  - Diaphragmatic disorder [None]
  - Asthenia [None]
  - Toxicity to various agents [None]
  - Deep vein thrombosis [None]
  - Thyroxine increased [None]
  - Tri-iodothyronine increased [None]
